FAERS Safety Report 24417037 (Version 1)
Quarter: 2024Q4

REPORT INFORMATION
  Report Type: Other
  Country: SV (occurrence: SV)
  Receive Date: 20241009
  Receipt Date: 20241009
  Transmission Date: 20250115
  Serious: No
  Sender: TOLMAR
  Company Number: SV-TOLMAR, INC.-24SV052597

PATIENT
  Age: 84 Year
  Sex: Male

DRUGS (4)
  1. ELIGARD [Suspect]
     Active Substance: LEUPROLIDE ACETATE
     Indication: Prostate cancer
     Dosage: 45 MILLIGRAM, Q 6 MONTH
     Route: 058
     Dates: start: 20210923
  2. ELIGARD [Suspect]
     Active Substance: LEUPROLIDE ACETATE
     Indication: Prostate cancer
     Dosage: UNK
  3. ROSUVASTATIN [Suspect]
     Active Substance: ROSUVASTATIN
     Indication: Blood pressure measurement
     Dosage: 1 DOSAGE FORM, QD
  4. EXFORGE [Concomitant]
     Active Substance: AMLODIPINE BESYLATE\VALSARTAN
     Indication: Blood pressure measurement
     Dosage: 150 MILLIGRAM, QD

REACTIONS (3)
  - Memory impairment [Recovering/Resolving]
  - Fall [Recovered/Resolved with Sequelae]
  - Head injury [Recovered/Resolved with Sequelae]

NARRATIVE: CASE EVENT DATE: 20240701
